FAERS Safety Report 9449541 (Version 1)
Quarter: 2013Q3

REPORT INFORMATION
  Report Type: Spontaneous
  Country: US (occurrence: US)
  Receive Date: 20130809
  Receipt Date: 20130809
  Transmission Date: 20140515
  Serious: No
  Sender: FDA-Public Use
  Company Number: US-009507513-1308USA000089

PATIENT
  Age: 76 Year
  Sex: Female

DRUGS (4)
  1. JANUVIA [Suspect]
     Indication: DIABETES MELLITUS
     Dosage: 100 MG/ ONCE DAILY
     Route: 048
     Dates: start: 201201
  2. MELOXICAM [Concomitant]
  3. GLIMEPIRIDE [Concomitant]
     Dosage: 4 MG, ONCE DAILY
  4. METOPROLOL [Concomitant]
     Dosage: 25 MG, ONCE DAILY

REACTIONS (2)
  - Abdominal pain lower [Not Recovered/Not Resolved]
  - Diarrhoea [Not Recovered/Not Resolved]
